FAERS Safety Report 8906068 (Version 1)
Quarter: 2012Q4

REPORT INFORMATION
  Report Type: 
  Country: CA (occurrence: CA)
  Receive Date: 20121109
  Receipt Date: 20121109
  Transmission Date: 20130627
  Serious: Yes (Other)
  Sender: FDA-Public Use
  Company Number: CA-ABBOTT-12P-028-1005800-00

PATIENT
  Age: 77 Year
  Sex: Female

DRUGS (4)
  1. VALPROIC ACID [Suspect]
     Indication: BIPOLAR DISORDER
  2. OLANZAPINE [Suspect]
     Indication: BIPOLAR DISORDER
  3. ANTIPSYCHOTICS [Concomitant]
     Indication: PRODUCT USED FOR UNKNOWN INDICATION
  4. ANTIPSYCHOTICS [Concomitant]
     Indication: PRODUCT USED FOR UNKNOWN INDICATION

REACTIONS (4)
  - Stereotypy [Unknown]
  - Tardive dyskinesia [Unknown]
  - Dyskinesia [Unknown]
  - Dyskinesia [Unknown]
